FAERS Safety Report 12217235 (Version 2)
Quarter: 2016Q2

REPORT INFORMATION
  Report Type: Spontaneous
  Country: IT (occurrence: IT)
  Receive Date: 20160329
  Receipt Date: 20160623
  Transmission Date: 20160815
  Serious: Yes (Hospitalization, Disabling, Other)
  Sender: FDA-Public Use
  Company Number: IT-PFIZER INC-2016163613

PATIENT
  Age: 57 Year
  Sex: Female

DRUGS (3)
  1. TAVOR (LORAZEPAM) [Suspect]
     Active Substance: LORAZEPAM
     Indication: INSOMNIA
     Dosage: 2.5 MG, DAILY
     Route: 048
     Dates: start: 1995
  2. SEROQUEL [Concomitant]
     Active Substance: QUETIAPINE FUMARATE
     Indication: PRODUCT USED FOR UNKNOWN INDICATION
     Dosage: 100 MG, UNK
     Route: 048
  3. ELOPRAM /00582602/ [Interacting]
     Active Substance: CITALOPRAM HYDROBROMIDE
     Indication: DEPRESSION
     Dosage: 12 GTT, DAILY
     Route: 048
     Dates: start: 1995

REACTIONS (17)
  - Hypokalaemia [Not Recovered/Not Resolved]
  - Facial paralysis [Recovered/Resolved]
  - Feeling abnormal [Recovered/Resolved]
  - Blood pressure fluctuation [Recovered/Resolved]
  - Palpitations [Recovered/Resolved]
  - Muscle spasms [Recovered/Resolved]
  - Hyperhidrosis [Recovered/Resolved]
  - Tachycardia [Recovered/Resolved]
  - Drug interaction [Recovered/Resolved]
  - Tinnitus [Not Recovered/Not Resolved]
  - Condition aggravated [Recovered/Resolved]
  - Accidental overdose [Not Recovered/Not Resolved]
  - Pruritus [Recovered/Resolved]
  - Deafness unilateral [Recovered/Resolved]
  - Hypoaesthesia [Not Recovered/Not Resolved]
  - Hemiparesis [Recovered/Resolved]
  - Sleep disorder [Recovered/Resolved]

NARRATIVE: CASE EVENT DATE: 2016
